FAERS Safety Report 4588537-6 (Version None)
Quarter: 2005Q1

REPORT INFORMATION
  Report Type: 
  Country: None (occurrence: None)
  Receive Date: 20050222
  Receipt Date: 20041210
  Transmission Date: 20050727
  Serious: Yes (Life-Threatening, Other)
  Sender: FDA-Public Use
  Company Number: 200413856JP

PATIENT
  Age: 80 Year
  Sex: Male

DRUGS (18)
  1. KETEK [Suspect]
     Indication: PNEUMONIA
     Route: 048
     Dates: start: 20041119, end: 20041122
  2. CEFXONE [Suspect]
     Indication: PNEUMONIA
     Route: 041
     Dates: start: 20041119, end: 20041122
  3. WARFARIN [Suspect]
     Indication: EMBOLISM
     Route: 048
  4. BAKUMONDOUTOU [Concomitant]
     Indication: BRONCHITIS
     Route: 048
     Dates: start: 20041119, end: 20041125
  5. MUCODYNE [Concomitant]
     Indication: BRONCHITIS ACUTE
     Route: 048
     Dates: start: 20041119, end: 20041125
  6. ENTERONON R [Concomitant]
     Indication: GASTROINTESTINAL DISORDER
     Route: 048
     Dates: start: 20041120, end: 20041125
  7. TANNALBIN [Concomitant]
     Indication: DIARRHOEA
     Route: 048
     Dates: start: 20041121, end: 20041125
  8. OZEX [Concomitant]
     Indication: PNEUMONIA
     Route: 048
     Dates: start: 20041122, end: 20041125
  9. ASPIRIN [Concomitant]
     Indication: MYOCARDIAL INFARCTION
     Route: 048
  10. ALDACTONE-A [Concomitant]
     Indication: HYPERTENSION
     Route: 048
  11. NORVASC [Concomitant]
     Indication: HYPERTENSION
     Route: 048
  12. ARTIST [Concomitant]
     Indication: MYOCARDIAL ISCHAEMIA
     Route: 048
  13. GASTER [Concomitant]
     Indication: GASTRITIS
     Route: 048
  14. SELBEX [Concomitant]
     Indication: GASTRITIS
     Route: 048
  15. SIGMART [Concomitant]
     Indication: ANGINA PECTORIS
     Route: 048
  16. MAGNESIUM OXIDE [Concomitant]
     Indication: GASTRITIS
     Route: 048
  17. STARSIS [Concomitant]
     Indication: DIABETES MELLITUS
     Route: 048
  18. GLUCOBAY [Concomitant]
     Indication: DIABETES MELLITUS
     Route: 048

REACTIONS (13)
  - ALANINE AMINOTRANSFERASE INCREASED [None]
  - ASPARTATE AMINOTRANSFERASE INCREASED [None]
  - BLOOD ALKALINE PHOSPHATASE INCREASED [None]
  - BLOOD CHLORIDE DECREASED [None]
  - BLOOD LACTATE DEHYDROGENASE INCREASED [None]
  - BLOOD SODIUM DECREASED [None]
  - GAMMA-GLUTAMYLTRANSFERASE INCREASED [None]
  - HAEMATOCRIT DECREASED [None]
  - HAEMOGLOBIN DECREASED [None]
  - HYPOCOAGULABLE STATE [None]
  - INTERSTITIAL LUNG DISEASE [None]
  - LIVER DISORDER [None]
  - RED BLOOD CELL COUNT DECREASED [None]
